FAERS Safety Report 6535504-9 (Version None)
Quarter: 2010Q1

REPORT INFORMATION
  Report Type: 
  Country: None (occurrence: None)
  Receive Date: 20100113
  Receipt Date: 20100108
  Transmission Date: 20100710
  Serious: Yes (Death)
  Sender: FDA-Public Use
  Company Number: IT-BAYER-201010927GPV

PATIENT
  Age: 29 Year
  Sex: Female

DRUGS (21)
  1. CAMPATH [Suspect]
     Indication: PERIPHERAL T-CELL LYMPHOMA UNSPECIFIED
     Dosage: DOSE ESCALATION ON DAY -2
     Route: 058
  2. CAMPATH [Suspect]
     Dosage: DOSE ESCALATION ON DAY -1
     Route: 058
  3. CAMPATH [Suspect]
     Dosage: DOSE ESCALATION ON DAY 0 BEFORE THE FIRST CHOP CYCLE
     Route: 058
  4. CAMPATH [Suspect]
     Dosage: DOSE ESCALATION ON DAY 0 BEFORE THE SECOND CHOP CYCLE
     Route: 058
  5. PREDNISONE [Suspect]
     Indication: PERIPHERAL T-CELL LYMPHOMA UNSPECIFIED
     Dosage: 2 CYCLES C-CHOP
     Route: 048
  6. CYCLOPHOSPHAMIDE [Suspect]
     Indication: PERIPHERAL T-CELL LYMPHOMA UNSPECIFIED
     Dosage: 2 CYCLES DAY 1, CHOP
  7. CYCLOPHOSPHAMIDE [Suspect]
     Dosage: FIRST CYCLE HYPER-C-HIDAM
  8. CYCLOPHOSPHAMIDE [Suspect]
     Dosage: DAYS -4, AND -3 (CONDITIONING REGIMEN)
  9. DOXORUBICIN HCL [Suspect]
     Indication: PERIPHERAL T-CELL LYMPHOMA UNSPECIFIED
     Dosage: 2 CYCLES, DAY 1 CHOP
  10. VINCRISTINE [Suspect]
     Indication: PERIPHERAL T-CELL LYMPHOMA UNSPECIFIED
     Dosage: 2 CYCLES, DAY 1, CHOP,  (MAXIMUM 2 MG)
  11. METHOTREXATE [Suspect]
     Indication: PERIPHERAL T-CELL LYMPHOMA UNSPECIFIED
     Route: 037
  12. METHOTREXATE [Suspect]
     Dosage: SHORT COURSE
  13. ARA-C [Suspect]
     Indication: PERIPHERAL T-CELL LYMPHOMA UNSPECIFIED
     Dosage: FIRST CYCLE HYPER-C-HIDAM, 2 G/M2
  14. ARA-C [Suspect]
     Dosage: LUMBAR PUNCTURE
  15. DEXAMETHASONE [Suspect]
     Indication: PERIPHERAL T-CELL LYMPHOMA UNSPECIFIED
     Dosage: LUMBAR PUNCTURE
  16. NEUPOGEN [Suspect]
     Indication: PERIPHERAL T-CELL LYMPHOMA UNSPECIFIED
     Dosage: SECOND CYCLE HYPER-C-HIDAM, 5 CG/KG/DAY
  17. NEUPOGEN [Suspect]
     Dosage: FIRST CYCLE HYPER-C-HIDAM, 5 CG/KG/DAY
  18. THIOTEPA [Suspect]
     Indication: PERIPHERAL T-CELL LYMPHOMA UNSPECIFIED
     Dosage: DAY -6
  19. FLUDARABINE PHOSPHATE [Suspect]
     Indication: PERIPHERAL T-CELL LYMPHOMA UNSPECIFIED
     Dosage: DAYS -4 AND -3
  20. LENOGRASTIM [Suspect]
     Indication: PERIPHERAL T-CELL LYMPHOMA UNSPECIFIED
  21. CYCLOSPORINE [Suspect]
     Indication: PROPHYLAXIS AGAINST GRAFT VERSUS HOST DISEASE

REACTIONS (2)
  - INTERSTITIAL LUNG DISEASE [None]
  - RESPIRATORY FAILURE [None]
